FAERS Safety Report 12492558 (Version 1)
Quarter: 2016Q2

REPORT INFORMATION
  Report Type: Spontaneous
  Country: US (occurrence: US)
  Receive Date: 20160623
  Receipt Date: 20160623
  Transmission Date: 20160815
  Serious: Yes (Other)
  Sender: FDA-Public Use
  Company Number: US-GLAXOSMITHKLINE-US2016088192

PATIENT
  Age: 68 Year
  Sex: Male

DRUGS (3)
  1. ANORO ELLIPTA [Suspect]
     Active Substance: UMECLIDINIUM BROMIDE\VILANTEROL TRIFENATATE
     Indication: CHRONIC OBSTRUCTIVE PULMONARY DISEASE
     Dosage: UNK
     Route: 055
     Dates: start: 201605
  2. LITHOBID [Concomitant]
     Active Substance: LITHIUM CARBONATE
  3. HYDROCODONE [Concomitant]
     Active Substance: HYDROCODONE

REACTIONS (16)
  - Deafness [Recovering/Resolving]
  - Abasia [Not Recovered/Not Resolved]
  - Dysstasia [Not Recovered/Not Resolved]
  - Ear disorder [Recovering/Resolving]
  - Pain in extremity [Recovering/Resolving]
  - Prostatomegaly [Not Recovered/Not Resolved]
  - Urinary tract disorder [Not Recovered/Not Resolved]
  - Hypoaesthesia [Recovering/Resolving]
  - Eye pain [Not Recovered/Not Resolved]
  - Fall [Recovering/Resolving]
  - Neck pain [Recovering/Resolving]
  - Micturition disorder [Not Recovered/Not Resolved]
  - Nasal congestion [Recovering/Resolving]
  - Neuropathy peripheral [Recovering/Resolving]
  - Muscle spasms [Unknown]
  - Muscular weakness [Recovering/Resolving]

NARRATIVE: CASE EVENT DATE: 201606
